FAERS Safety Report 14292925 (Version 3)
Quarter: 2018Q1

REPORT INFORMATION
  Report Type: Spontaneous
  Country: US (occurrence: US)
  Receive Date: 20171215
  Receipt Date: 20180129
  Transmission Date: 20180509
  Serious: Yes (Other)
  Sender: FDA-Public Use
  Company Number: US-PFIZER INC-2017530413

PATIENT
  Age: 18 Year
  Sex: Female

DRUGS (15)
  1. PROPOFOL. [Suspect]
     Active Substance: PROPOFOL
     Indication: AGITATION
     Dosage: 50 MG, UNK
     Route: 042
  2. MEPERIDINE [Concomitant]
     Active Substance: MEPERIDINE
     Indication: PAIN
     Dosage: 25 MG, UNK
     Route: 042
  3. SUCCINYLCHOLINE [Concomitant]
     Active Substance: SUCCINYLCHOLINE
     Indication: GENERAL ANAESTHESIA
     Dosage: 100 MG, UNK
     Route: 042
  4. PROPOFOL. [Suspect]
     Active Substance: PROPOFOL
     Indication: SEDATION
     Dosage: 70 MG, UNK
     Route: 042
  5. FENTANYL. [Concomitant]
     Active Substance: FENTANYL
     Dosage: 50 UG, UNK
     Route: 042
  6. FENTANYL. [Concomitant]
     Active Substance: FENTANYL
     Dosage: 25 UG, UNK (25 MCG PER HOUR)
     Route: 042
  7. SALINE [Concomitant]
     Active Substance: SODIUM CHLORIDE
     Dosage: UNK (IV INFUSION)
     Route: 042
  8. NALOXONE [Concomitant]
     Active Substance: NALOXONE
     Indication: PAIN
     Dosage: 0.16 MG, UNK
  9. FENTANYL. [Concomitant]
     Active Substance: FENTANYL
     Indication: SEDATION
     Dosage: 100 UG, UNK
     Route: 042
  10. PHYSOSTIGMINE [Concomitant]
     Active Substance: PHYSOSTIGMINE
     Indication: ANTICHOLINERGIC SYNDROME
     Dosage: 1 MG, UNK
     Route: 042
  11. PROPOFOL. [Suspect]
     Active Substance: PROPOFOL
     Indication: GENERAL ANAESTHESIA
     Dosage: 200 MG, UNK (DIVIDED DOSES OVER A PERIOD OF APPROXIMATELY 30 MINUTES)
  12. MIDAZOLAM [Concomitant]
     Active Substance: MIDAZOLAM HYDROCHLORIDE
     Indication: SEDATION
     Dosage: 3 MG, UNK
     Route: 042
  13. PROPOFOL. [Suspect]
     Active Substance: PROPOFOL
     Dosage: 180 MG, UNK
     Route: 042
  14. PROPOFOL. [Suspect]
     Active Substance: PROPOFOL
     Dosage: 50 UG/KG, UNK (CONTINUOUS PROPOFOL INFUSION AT 50MG/KG PERMINUTE)
  15. FLUMAZENIL. [Concomitant]
     Active Substance: FLUMAZENIL
     Indication: TOXICITY TO VARIOUS AGENTS
     Dosage: 0.1 MG, UNK
     Route: 042

REACTIONS (6)
  - Toxicity to various agents [Unknown]
  - Agitation [Recovered/Resolved]
  - Psychomotor hyperactivity [Unknown]
  - Lactic acidosis [Unknown]
  - Unresponsive to stimuli [Unknown]
  - Rhabdomyolysis [Unknown]
